FAERS Safety Report 23963622 (Version 1)
Quarter: 2024Q2

REPORT INFORMATION
  Report Type: Report from Study
  Country: US (occurrence: US)
  Receive Date: 20240611
  Receipt Date: 20240611
  Transmission Date: 20240716
  Serious: Yes (Other)
  Sender: FDA-Public Use
  Company Number: US-SOCIETAL CDMO GAINESVILLE, LLC-SOC-2024-000016

PATIENT

DRUGS (1)
  1. VERAPAMIL HYDROCHLORIDE [Suspect]
     Active Substance: VERAPAMIL HYDROCHLORIDE
     Indication: Cell death
     Dosage: UNK
     Route: 048

REACTIONS (2)
  - Hypoglycaemia [Unknown]
  - Off label use [Unknown]
